FAERS Safety Report 8324831-0 (Version None)
Quarter: 2012Q2

REPORT INFORMATION
  Report Type: 
  Country: None (occurrence: None)
  Receive Date: 20120427
  Receipt Date: 20120419
  Transmission Date: 20120825
  Serious: Yes (Life-Threatening, Disabling, Other)
  Sender: FDA-Public Use
  Company Number: DSM-2012-00421

PATIENT
  Age: 44 Year
  Sex: Male
  Weight: 80 kg

DRUGS (3)
  1. SEVIKAR HCT (TABLET) [Suspect]
     Indication: HYPERTENSION
     Dosage: 40/5/12.5 MG (1 IN 1 D),ORAL
     Route: 048
     Dates: start: 20120326, end: 20120405
  2. AMOXICILLIN [Suspect]
     Indication: PHARYNGITIS
     Dosage: 3000 MG (1000 MG, 3 IN 1 D)
     Dates: start: 20120326, end: 20120405
  3. NOBITEN (NEBIVOLOL) (NEBIVOLOL) [Concomitant]

REACTIONS (4)
  - ANAPHYLACTOID REACTION [None]
  - PHARYNGITIS [None]
  - BLOOD PRESSURE DECREASED [None]
  - DRUG INTERACTION [None]
